FAERS Safety Report 15629183 (Version 1)
Quarter: 2018Q4

REPORT INFORMATION
  Report Type: Spontaneous
  Country: GB (occurrence: GB)
  Receive Date: 20181116
  Receipt Date: 20181116
  Transmission Date: 20190205
  Serious: Yes (Other)
  Sender: FDA-Public Use
  Company Number: GB-ABBVIE-18K-167-2552729-00

PATIENT
  Age: 43 Year
  Sex: Female

DRUGS (1)
  1. HUMIRA [Suspect]
     Active Substance: ADALIMUMAB
     Indication: CROHN^S DISEASE
     Route: 058
     Dates: start: 20160101, end: 20181030

REACTIONS (3)
  - Pruritus [Unknown]
  - Systemic lupus erythematosus [Not Recovered/Not Resolved]
  - Butterfly rash [Unknown]

NARRATIVE: CASE EVENT DATE: 20171004
